FAERS Safety Report 11842298 (Version 3)
Quarter: 2016Q3

REPORT INFORMATION
  Report Type: Report from Study
  Country: US (occurrence: US)
  Receive Date: 20151216
  Receipt Date: 20160915
  Transmission Date: 20161109
  Serious: Yes (Hospitalization, Other)
  Sender: FDA-Public Use
  Company Number: US-AMGEN-USASP2015131841

PATIENT
  Age: 88 Year
  Sex: Female

DRUGS (3)
  1. ENBREL [Suspect]
     Active Substance: ETANERCEPT
     Indication: RHEUMATOID ARTHRITIS
     Dosage: 50 MG, QWK
     Route: 065
     Dates: start: 2012
  2. ENBREL [Suspect]
     Active Substance: ETANERCEPT
     Dosage: 50 MG, QWK FOR 8 SURECLICKS
     Route: 065
     Dates: start: 2016
  3. ENBREL [Suspect]
     Active Substance: ETANERCEPT
     Dosage: 50 MG, QWK FOR 2 SURECLICKS
     Route: 065
     Dates: start: 2016

REACTIONS (9)
  - Cellulitis [Unknown]
  - Surgery [Unknown]
  - Malaise [Unknown]
  - Hip fracture [Unknown]
  - Therapeutic response decreased [Unknown]
  - Musculoskeletal pain [Unknown]
  - Fall [Unknown]
  - Epistaxis [Not Recovered/Not Resolved]
  - Arthralgia [Unknown]

NARRATIVE: CASE EVENT DATE: 2014
